FAERS Safety Report 13780036 (Version 1)
Quarter: 2017Q3

REPORT INFORMATION
  Report Type: Spontaneous
  Country: BR (occurrence: BR)
  Receive Date: 20170723
  Receipt Date: 20170723
  Transmission Date: 20171127
  Serious: Yes (Other)
  Sender: FDA-Public Use
  Company Number: BR-ROCHE-1964705

PATIENT
  Age: 48 Year
  Sex: Female

DRUGS (4)
  1. RIVOTRIL [Suspect]
     Active Substance: CLONAZEPAM
     Indication: HYPERTENSION
  2. RIVOTRIL [Suspect]
     Active Substance: CLONAZEPAM
     Indication: PANIC DISORDER
     Route: 048
  3. RIVOTRIL [Suspect]
     Active Substance: CLONAZEPAM
     Indication: BIPOLAR DISORDER
  4. RIVOTRIL [Suspect]
     Active Substance: CLONAZEPAM
     Indication: TACHYCARDIA

REACTIONS (5)
  - Intentional product use issue [Unknown]
  - Speech disorder [Unknown]
  - Malaise [Unknown]
  - Disorientation [Unknown]
  - Off label use [Unknown]

NARRATIVE: CASE EVENT DATE: 20170713
